FAERS Safety Report 25699732 (Version 1)
Quarter: 2025Q3

REPORT INFORMATION
  Report Type: Spontaneous
  Country: EU (occurrence: EU)
  Receive Date: 20250819
  Receipt Date: 20250819
  Transmission Date: 20251021
  Serious: Yes (Hospitalization, Other)
  Sender: SANDOZ
  Company Number: EU-CELLTRION INC.-2025CZ025554

PATIENT
  Age: 51 Year
  Sex: Male

DRUGS (2)
  1. ROSUVASTATIN [Suspect]
     Active Substance: ROSUVASTATIN
     Indication: Hypercholesterolaemia
     Dosage: 40 MILLIGRAM ONCE DAILY
     Route: 065
  2. YUFLYMA [Suspect]
     Active Substance: ADALIMUMAB-AATY
     Indication: Psoriasis
     Route: 058
     Dates: start: 20231201, end: 20250502

REACTIONS (2)
  - Pneumonia [Recovered/Resolved]
  - Empyema [Recovered/Resolved]

NARRATIVE: CASE EVENT DATE: 20250423
